FAERS Safety Report 17548172 (Version 3)
Quarter: 2021Q2

REPORT INFORMATION
  Report Type: Spontaneous
  Country: FR (occurrence: FR)
  Receive Date: 20200317
  Receipt Date: 20210412
  Transmission Date: 20210716
  Serious: Yes (Hospitalization)
  Sender: FDA-Public Use
  Company Number: FR-PFIZER INC-2020113846

PATIENT
  Age: 21 Year
  Sex: Female
  Weight: 60 kg

DRUGS (6)
  1. BENEPALI [Suspect]
     Active Substance: ETANERCEPT
     Indication: SPONDYLITIS
     Dosage: 1 DF, WEEKLY
     Route: 058
     Dates: start: 201901, end: 201908
  2. NAPROXENE [NAPROXEN] [Suspect]
     Active Substance: NAPROXEN
     Indication: GAIT DISTURBANCE
     Dosage: INCONNUE
     Route: 048
     Dates: start: 201808, end: 201810
  3. KETOPROFENE [KETOPROFEN] [Suspect]
     Active Substance: KETOPROFEN
     Indication: GAIT DISTURBANCE
     Dosage: INCONNUE
     Route: 048
     Dates: start: 201810, end: 201811
  4. MINIDRIL [Suspect]
     Active Substance: ETHINYL ESTRADIOL\LEVONORGESTREL
     Indication: ORAL CONTRACEPTION
     Dosage: 21 DF, MONTHLY (1 IN 1 M)
     Route: 048
     Dates: start: 2013, end: 202001
  5. AMGEVITA [Suspect]
     Active Substance: ADALIMUMAB
     Indication: SPONDYLITIS
     Dosage: 1 DF, CYCLIC (IN 2 WEEKS)
     Route: 058
     Dates: start: 201908
  6. METHOTREXATE SODIUM. [Suspect]
     Active Substance: METHOTREXATE SODIUM
     Indication: SPONDYLITIS
     Dosage: 10 MG, WEEKLY (10 MG,1 IN 1 WK)
     Route: 048
     Dates: start: 201811

REACTIONS (2)
  - Hepatic adenoma [Recovering/Resolving]
  - Off label use [Unknown]

NARRATIVE: CASE EVENT DATE: 201811
